FAERS Safety Report 7429350-1 (Version None)
Quarter: 2011Q2

REPORT INFORMATION
  Report Type: 
  Country: None (occurrence: None)
  Receive Date: 20110421
  Receipt Date: 20110414
  Transmission Date: 20111010
  Serious: Yes (Hospitalization)
  Sender: FDA-Public Use
  Company Number: FR-SANOFI-AVENTIS-2011SA022701

PATIENT
  Age: 89 Year
  Sex: Female

DRUGS (14)
  1. CORDARONE [Concomitant]
     Indication: ATRIAL FIBRILLATION
     Route: 048
     Dates: start: 20101101, end: 20101101
  2. LASIX [Concomitant]
     Route: 048
  3. PREVISCAN [Suspect]
     Route: 048
     Dates: start: 20100101
  4. LEVOTHYROX [Concomitant]
     Route: 048
  5. ESOMEPRAZOLE [Concomitant]
     Route: 048
  6. CORDARONE [Concomitant]
     Route: 048
     Dates: start: 20101101, end: 20101215
  7. ALLOPURINOL [Concomitant]
     Route: 048
  8. MULTAQ [Suspect]
     Indication: ATRIAL FIBRILLATION
     Route: 048
     Dates: start: 20101215
  9. SERESTA [Concomitant]
     Route: 048
  10. KARDEGIC [Concomitant]
     Route: 048
  11. DAFALGAN [Concomitant]
     Route: 048
  12. MODOPAR [Concomitant]
     Route: 048
  13. CARDENSIEL [Concomitant]
     Route: 048
  14. FORLAX [Concomitant]
     Route: 048

REACTIONS (2)
  - INTRA-ABDOMINAL HAEMATOMA [None]
  - INTERNATIONAL NORMALISED RATIO INCREASED [None]
